FAERS Safety Report 15336768 (Version 2)
Quarter: 2018Q3

REPORT INFORMATION
  Report Type: Spontaneous
  Country: CH (occurrence: CH)
  Receive Date: 20180831
  Receipt Date: 20180907
  Transmission Date: 20181010
  Serious: Yes (Other)
  Sender: FDA-Public Use
  Company Number: -ASTRAZENECA-2018SF07153

PATIENT
  Age: 33006 Day
  Sex: Female

DRUGS (23)
  1. RENITEN [Concomitant]
     Active Substance: ENALAPRIL
     Dates: end: 20180611
  2. ZANIDIP [Concomitant]
     Active Substance: LERCANIDIPINE HYDROCHLORIDE
  3. CALCIMAGON D3 [Suspect]
     Active Substance: CALCIUM\CHOLECALCIFEROL
     Route: 048
     Dates: start: 20180524
  4. SEVREDOL [Concomitant]
     Active Substance: MORPHINE
     Dosage: AS NECESSARY
     Dates: start: 20180529
  5. SEVREDOL [Concomitant]
     Active Substance: MORPHINE
     Dosage: IN TOTAL
     Dates: start: 20180605, end: 20180605
  6. NEXIUM [Suspect]
     Active Substance: ESOMEPRAZOLE MAGNESIUM
     Route: 048
     Dates: start: 20180608, end: 20180627
  7. DAFALGAN [Suspect]
     Active Substance: ACETAMINOPHEN
     Route: 048
     Dates: start: 20180524, end: 20180609
  8. ACIDUM FOLICUM [Suspect]
     Active Substance: FOLIC ACID
     Route: 048
     Dates: start: 20180608
  9. HEPARIN [Concomitant]
     Active Substance: HEPARIN SODIUM
     Dates: start: 20180605, end: 20180608
  10. NEXIUM [Suspect]
     Active Substance: ESOMEPRAZOLE MAGNESIUM
     Route: 048
     Dates: start: 20180524, end: 20180608
  11. SORTIS [Suspect]
     Active Substance: ATORVASTATIN
     Route: 048
     Dates: end: 20180709
  12. COLECALCIFEROL [Suspect]
     Active Substance: CHOLECALCIFEROL
     Route: 048
     Dates: start: 20180608
  13. ONDANSETRON [Suspect]
     Active Substance: ONDANSETRON
     Dates: start: 20180524
  14. MOVICOL [Concomitant]
     Active Substance: POLYETHYLENE GLYCOL 3350\POTASSIUM CHLORIDE\SODIUM BICARBONATE\SODIUM CHLORIDE
     Dosage: AS NECESSARY
     Dates: start: 20180612
  15. RESONIUM A [Concomitant]
     Active Substance: SODIUM POLYSTYRENE SULFONATE
     Dosage: IN TOTAL
     Dates: start: 20180609, end: 20180609
  16. CIPRALEX [Concomitant]
     Active Substance: ESCITALOPRAM OXALATE
  17. CLEXANE [Concomitant]
     Active Substance: ENOXAPARIN SODIUM
     Dates: start: 20180525, end: 20180602
  18. MOVICOL [Concomitant]
     Active Substance: POLYETHYLENE GLYCOL 3350\POTASSIUM CHLORIDE\SODIUM BICARBONATE\SODIUM CHLORIDE
     Dates: start: 20180604, end: 20180612
  19. SEVREDOL [Concomitant]
     Active Substance: MORPHINE
     Dates: start: 20180524, end: 20180529
  20. TOREM [Suspect]
     Active Substance: TORSEMIDE
     Route: 048
     Dates: start: 20180618, end: 20180625
  21. ELIQUIS [Concomitant]
     Active Substance: APIXABAN
     Dates: start: 20180608
  22. ONDANSETRON [Suspect]
     Active Substance: ONDANSETRON
     Dosage: AS NECESSARY
  23. ELIQUIS [Concomitant]
     Active Substance: APIXABAN
     Route: 065
     Dates: end: 20180524

REACTIONS (2)
  - Cholestatic liver injury [Recovering/Resolving]
  - Rash erythematous [Not Recovered/Not Resolved]

NARRATIVE: CASE EVENT DATE: 20180609
